FAERS Safety Report 5056395-1 (Version None)
Quarter: 2006Q3

REPORT INFORMATION
  Report Type: 
  Country: None (occurrence: None)
  Receive Date: 20060717
  Receipt Date: 20060703
  Transmission Date: 20061208
  Serious: No
  Sender: FDA-Public Use
  Company Number: 2006-138971-NL

PATIENT
  Age: 33 Year
  Sex: Female

DRUGS (3)
  1. ETONOGESTREL (BATCH #: 761032/774684) [Suspect]
     Indication: CONTRACEPTION
     Dosage: DF
     Dates: start: 20050808, end: 20051213
  2. SERTRALIA IUD [Concomitant]
  3. SPIRAMYCIN [Concomitant]

REACTIONS (4)
  - DRUG EXPOSURE DURING PREGNANCY [None]
  - NEONATAL RESPIRATORY DISTRESS SYNDROME [None]
  - PREGNANCY WITH IMPLANT CONTRACEPTIVE [None]
  - TOXOPLASMOSIS [None]
